FAERS Safety Report 9203637 (Version 1)
Quarter: 2013Q2

REPORT INFORMATION
  Report Type: Spontaneous
  Country: AU (occurrence: AU)
  Receive Date: 20130402
  Receipt Date: 20130402
  Transmission Date: 20140414
  Serious: Yes (Other)
  Sender: FDA-Public Use
  Company Number: PHHY2012AU128017

PATIENT
  Age: 72 Year
  Sex: Female
  Weight: 68 kg

DRUGS (10)
  1. ACLASTA [Suspect]
     Indication: OSTEOPOROSIS
     Dosage: 5 MG, UNK
     Route: 042
     Dates: start: 20091102
  2. ACLASTA [Suspect]
     Dosage: 5 MG, UNK
     Route: 042
     Dates: start: 20101109
  3. ACLASTA [Suspect]
     Dosage: 5 MG, UNK
     Route: 042
     Dates: start: 20111118
  4. VITAMIN D//COLECALCIFEROL [Concomitant]
     Dosage: 25 MCG
  5. LIPITOR [Concomitant]
     Dosage: 10 MG, UNK
  6. CALTRATE [Concomitant]
     Dosage: 600 MG, UNK
  7. EGOCORT [Concomitant]
     Dosage: 1 %, UNK
  8. NEXIUM 1-2-3 [Concomitant]
     Dosage: 1 %, UNK
  9. CIPRAMIL                                /NET/ [Concomitant]
     Dosage: 20 MG, UNK
  10. COVERSYL                                /BEL/ [Concomitant]
     Dosage: 1 DF, UNK

REACTIONS (5)
  - Depression [Recovering/Resolving]
  - Blood cholesterol increased [Unknown]
  - Blood bicarbonate increased [Unknown]
  - Blood albumin decreased [Unknown]
  - Eczema [Unknown]
